FAERS Safety Report 6634323-2 (Version None)
Quarter: 2010Q1

REPORT INFORMATION
  Report Type: 
  Country: None (occurrence: None)
  Receive Date: 20100312
  Receipt Date: 20100312
  Transmission Date: 20100710
  Serious: Yes (Other)
  Sender: FDA-Public Use
  Company Number: None

PATIENT
  Age: 57 Year
  Sex: Female
  Weight: 73.4827 kg

DRUGS (2)
  1. VISTARIL [Suspect]
     Indication: ADVERSE DRUG REACTION
     Dosage: I INJECTION IM; 1 INJECTION IM
     Route: 030
     Dates: start: 20100223
  2. VISTARIL [Suspect]
     Indication: ADVERSE DRUG REACTION
     Dosage: I INJECTION IM; 1 INJECTION IM
     Route: 030
     Dates: start: 20100224

REACTIONS (1)
  - URINE OUTPUT INCREASED [None]
